FAERS Safety Report 7575223-3 (Version None)
Quarter: 2011Q2

REPORT INFORMATION
  Report Type: 
  Country: None (occurrence: None)
  Receive Date: 20110627
  Receipt Date: 20091122
  Transmission Date: 20111010
  Serious: Yes (Death, Hospitalization, Other)
  Sender: FDA-Public Use
  Company Number: US-BAYER-200940683NA

PATIENT
  Age: 75 Year
  Sex: Male
  Weight: 72.562 kg

DRUGS (8)
  1. RED BLOOD CELLS [Concomitant]
     Dosage: 2 U, UNK
     Route: 042
     Dates: start: 20030220, end: 20030220
  2. COUMADIN [Concomitant]
     Dosage: UNK
     Route: 048
     Dates: start: 20020101
  3. HYDROCHLOROTHIAZIDE [Concomitant]
     Dosage: UNK
     Route: 048
     Dates: start: 20020101
  4. LASIX [Concomitant]
     Dosage: UNK
     Route: 048
     Dates: start: 20020101
  5. LISINOPRIL [Concomitant]
     Dosage: UNK
     Route: 048
     Dates: start: 20010101
  6. NAPROXEN (ALEVE) [Concomitant]
     Dosage: UNK UNK, PRN
     Route: 048
     Dates: start: 19900101
  7. TRASYLOL [Suspect]
     Indication: CORONARY ARTERY BYPASS
     Dosage: UNK
     Route: 042
     Dates: start: 20030220
  8. LIPITOR [Concomitant]
     Dosage: UNK
     Route: 048
     Dates: start: 20010101

REACTIONS (13)
  - EMOTIONAL DISTRESS [None]
  - UNEVALUABLE EVENT [None]
  - DEATH [None]
  - MULTI-ORGAN FAILURE [None]
  - ANXIETY [None]
  - FEAR [None]
  - PAIN [None]
  - RENAL FAILURE [None]
  - RENAL IMPAIRMENT [None]
  - RENAL INJURY [None]
  - STRESS [None]
  - ANHEDONIA [None]
  - INJURY [None]
